FAERS Safety Report 20406681 (Version 1)
Quarter: 2022Q1

REPORT INFORMATION
  Report Type: Spontaneous
  Country: US (occurrence: None)
  Receive Date: 20220131
  Receipt Date: 20220131
  Transmission Date: 20220424
  Serious: No
  Sender: FDA-Public Use
  Company Number: None

PATIENT
  Sex: Female

DRUGS (1)
  1. NEXPLANON [Suspect]
     Active Substance: ETONOGESTREL
     Indication: Contraception
     Dosage: FREQUENCY : ONCE;?OTHER ROUTE : SUBDERMAL;?
     Dates: start: 202104, end: 20211222

REACTIONS (2)
  - Complication associated with device [None]
  - Heavy menstrual bleeding [None]
